FAERS Safety Report 9844809 (Version 1)
Quarter: 2014Q1

REPORT INFORMATION
  Report Type: Spontaneous
  Country: US (occurrence: None)
  Receive Date: 20140122
  Receipt Date: 20140122
  Transmission Date: 20141002
  Serious: Yes (Other)
  Sender: FDA-Public Use
  Company Number: 2014-US-00356

PATIENT
  Age: 55 Year
  Sex: Female
  Weight: 62.1 kg

DRUGS (11)
  1. XYREM (SODIUM OXYBATE) ORAL SOLUTION, 500 MG/ML [Suspect]
     Indication: NARCOLEPSY
     Route: 048
     Dates: start: 201311, end: 2013
  2. LOSARTAN (LOSARTAN POTASSIUM) [Concomitant]
  3. LIVALO (PITAVASTATIN CALCIUM) [Concomitant]
  4. NUVIGIL (ARMODAFINIL) [Concomitant]
  5. MOBIC (MELOXICAM) [Concomitant]
  6. METHOTREXATE (METHOTREXATE SODIUM) [Concomitant]
  7. CYMBALTA [Concomitant]
  8. LYRICA (PREGABALIN) [Concomitant]
  9. EVOXAC (CEVIMELINE HYDROCHLORIDE) [Concomitant]
  10. FOLIC ACID (FOLIC ACID) [Concomitant]
  11. POTASSIUM (POTASSIUM CHLORIDE) [Concomitant]

REACTIONS (1)
  - Sleep apnoea syndrome [None]
